FAERS Safety Report 8501597-2 (Version None)
Quarter: 2012Q3

REPORT INFORMATION
  Report Type: 
  Country: None (occurrence: None)
  Receive Date: 20120710
  Receipt Date: 20120703
  Transmission Date: 20120928
  Serious: Yes (Hospitalization, Other)
  Sender: FDA-Public Use
  Company Number: FI-ROCHE-1084070

PATIENT
  Age: 57 Year
  Sex: Male
  Weight: 100 kg

DRUGS (7)
  1. MICARDIS [Concomitant]
  2. MABTHERA [Suspect]
     Indication: CHRONIC LYMPHOCYTIC LEUKAEMIA
  3. NEXIUM [Concomitant]
  4. FLUDARABINE PHOSPHATE [Suspect]
     Indication: CHRONIC LYMPHOCYTIC LEUKAEMIA
  5. IMOVANE [Concomitant]
  6. CHLORAMBUCIL [Suspect]
     Indication: CHRONIC LYMPHOCYTIC LEUKAEMIA
  7. ALPRAZOLAM [Concomitant]
     Indication: STRESS AT WORK

REACTIONS (11)
  - DYSPHONIA [None]
  - HYPOSMIA [None]
  - NEUTROPHIL COUNT DECREASED [None]
  - ONYCHOCLASIS [None]
  - FEELING ABNORMAL [None]
  - MUSCLE SPASMS [None]
  - LOCALISED OEDEMA [None]
  - PROSTATITIS [None]
  - PYREXIA [None]
  - INFECTION [None]
  - HYPOTHYROIDISM [None]
